FAERS Safety Report 5021784-8 (Version None)
Quarter: 2006Q2

REPORT INFORMATION
  Report Type: 
  Country: None (occurrence: None)
  Receive Date: 20060605
  Receipt Date: 20060519
  Transmission Date: 20061013
  Serious: Yes (Hospitalization)
  Sender: FDA-Public Use
  Company Number: US-2006-007553

PATIENT
  Age: 61 Year
  Sex: Male

DRUGS (12)
  1. CAMPATH [Suspect]
     Indication: BONE MARROW CONDITIONING REGIMEN
     Dosage: 50 MG D-7 TO D-3, INTRAVENOUS
     Route: 042
     Dates: start: 20060201, end: 20060205
  2. FLUDARA [Suspect]
     Indication: BONE MARROW CONDITIONING REGIMEN
     Dosage: 25 MG/M2 D-5 TO D, INTRAVENOUS
     Route: 042
     Dates: start: 20060203, end: 20060207
  3. CYCLOPHOSPHAMIDE [Suspect]
     Indication: BONE MARROW CONDITIONING REGIMEN
     Dosage: 45 MG/KG D-4, D-3 INTRAVENOUS
     Route: 042
     Dates: start: 20060204, end: 20060205
  4. MESNA [Suspect]
     Indication: BONE MARROW CONDITIONING REGIMEN
     Dosage: 12 MG/KG (48 MG/KG PER DAY)
     Dates: start: 20060204
  5. LEUKINE LIQUID                            (SARGRAMOSTIM) LIQUID [Suspect]
     Indication: BONE MARROW CONDITIONING REGIMEN
  6. GANCICLOVIR [Suspect]
     Indication: CYTOMEGALOVIRUS VIRAEMIA
     Dosage: INTRAVENOUS
     Route: 042
     Dates: start: 20060317, end: 20060319
  7. CYCLOSPORINE [Concomitant]
  8. METOPROLOL SUCCINATE [Concomitant]
  9. LEVOFLOXACIN [Concomitant]
  10. PREDNISONE [Concomitant]
  11. BACTRIM [Concomitant]
  12. FLUCONAZOLE [Concomitant]

REACTIONS (18)
  - ABDOMINAL PAIN [None]
  - ASCITES [None]
  - ATRIAL FIBRILLATION [None]
  - CALCULUS URINARY [None]
  - CARDIAC FAILURE CONGESTIVE [None]
  - CARDIOMYOPATHY [None]
  - CYTOMEGALOVIRUS VIRAEMIA [None]
  - FULL BLOOD COUNT DECREASED [None]
  - GASTROENTERITIS [None]
  - GENERAL NUTRITION DISORDER [None]
  - HYDROURETER [None]
  - HYPOTENSION [None]
  - INFUSION RELATED REACTION [None]
  - ORAL INTAKE REDUCED [None]
  - PERICARDIAL EFFUSION [None]
  - RENAL FAILURE ACUTE [None]
  - STEM CELL TRANSPLANT [None]
  - TACHYCARDIA [None]
